FAERS Safety Report 8793628 (Version 5)
Quarter: 2012Q4

REPORT INFORMATION
  Report Type: 
  Country: LV (occurrence: LV)
  Receive Date: 20120917
  Receipt Date: 20121011
  Transmission Date: 20130627
  Serious: Yes (Hospitalization)
  Sender: FDA-Public Use
  Company Number: LV-GLAXOSMITHKLINE-B0830738A

PATIENT
  Age: 31 Year
  Sex: Female

DRUGS (1)
  1. LAMICTAL [Suspect]
     Indication: EPILEPSY
     Dosage: 25MG per day
     Route: 048
     Dates: start: 20120906, end: 20120909

REACTIONS (13)
  - Toxic skin eruption [Recovered/Resolved with Sequelae]
  - Purpura [Recovering/Resolving]
  - Rash pruritic [Recovered/Resolved with Sequelae]
  - Swelling [Recovered/Resolved with Sequelae]
  - Pyrexia [Recovering/Resolving]
  - Mouth ulceration [Recovering/Resolving]
  - Ulcer [Recovering/Resolving]
  - Macule [Recovering/Resolving]
  - Papule [Recovering/Resolving]
  - Dry skin [Unknown]
  - Oedema mouth [Recovering/Resolving]
  - Pigmentation disorder [Not Recovered/Not Resolved]
  - Visual acuity reduced [Unknown]
